FAERS Safety Report 4606583-0 (Version None)
Quarter: 2005Q2

REPORT INFORMATION
  Report Type: 
  Country: None (occurrence: None)
  Receive Date: 20050223
  Receipt Date: 20040630
  Transmission Date: 20051028
  Serious: Yes (Other)
  Sender: FDA-Public Use
  Company Number: WAES 0406USA02754

PATIENT
  Sex: 0

DRUGS (2)
  1. ZOCOR [Suspect]
     Dosage: 80 MG/PO
     Route: 048
  2. LOPID [Concomitant]

REACTIONS (2)
  - BLOOD CREATININE INCREASED [None]
  - RHABDOMYOLYSIS [None]
